FAERS Safety Report 19173801 (Version 2)
Quarter: 2021Q4

REPORT INFORMATION
  Report Type: Spontaneous
  Country: US (occurrence: US)
  Receive Date: 20210423
  Receipt Date: 20211004
  Transmission Date: 20220303
  Serious: No
  Sender: FDA-Public Use
  Company Number: US-MYLANLABS-2021M1023188

PATIENT
  Sex: Male
  Weight: 90 kg

DRUGS (2)
  1. EPIPEN [Suspect]
     Active Substance: EPINEPHRINE
     Indication: Food allergy
     Dosage: UNK
     Route: 030
  2. EPIPEN [Suspect]
     Active Substance: EPINEPHRINE
     Dosage: UNK
     Route: 030

REACTIONS (1)
  - Product quality issue [None]
